FAERS Safety Report 7523924-5 (Version None)
Quarter: 2011Q2

REPORT INFORMATION
  Report Type: 
  Country: None (occurrence: None)
  Receive Date: 20110603
  Receipt Date: 20110526
  Transmission Date: 20111010
  Serious: Yes (Death, Life-Threatening)
  Sender: FDA-Public Use
  Company Number: US-RB-028111-11

PATIENT
  Age: 20 Year
  Sex: Male

DRUGS (1)
  1. SUBOXONE [Suspect]
     Indication: DRUG DEPENDENCE
     Route: 060
     Dates: start: 20110101, end: 20110101

REACTIONS (3)
  - OFF LABEL USE [None]
  - DEPENDENCE [None]
  - DEATH [None]
